FAERS Safety Report 9445717 (Version 1)
Quarter: 2013Q3

REPORT INFORMATION
  Report Type: Other
  Country: US (occurrence: US)
  Receive Date: 20130807
  Receipt Date: 20130807
  Transmission Date: 20140515
  Serious: Yes (Hospitalization)
  Sender: FDA-Public Use
  Company Number: US-BRISTOL-MYERS SQUIBB COMPANY-19134550

PATIENT
  Age: 43 Year
  Sex: Male

DRUGS (4)
  1. MITOMYCIN-C [Suspect]
     Indication: APPENDIX CANCER
     Route: 033
     Dates: start: 200802
  2. ADRIACIN [Suspect]
     Indication: APPENDIX CANCER
     Route: 033
     Dates: start: 200802
  3. 5-FLUOROURACIL [Suspect]
     Indication: APPENDIX CANCER
     Route: 033
     Dates: start: 200802
  4. LEUCOVORIN [Concomitant]
     Route: 042
     Dates: start: 200802

REACTIONS (1)
  - Gastric perforation [Recovered/Resolved]
